FAERS Safety Report 10192545 (Version 2)
Quarter: 2014Q2

REPORT INFORMATION
  Report Type: Spontaneous
  Country: PL (occurrence: PL)
  Receive Date: 20140523
  Receipt Date: 20140627
  Transmission Date: 20141212
  Serious: Yes (Disabling, Other)
  Sender: FDA-Public Use
  Company Number: PL-ASTELLAS-2014EU005534

PATIENT
  Age: 91 Year
  Sex: Female

DRUGS (7)
  1. VESICARE [Suspect]
     Indication: URINARY INCONTINENCE
     Route: 065
     Dates: start: 201208
  2. VESICARE [Suspect]
     Route: 048
     Dates: start: 201301, end: 20140509
  3. METAZYDYNA                         /00489601/ [Concomitant]
     Indication: GLAUCOMA
     Route: 065
     Dates: start: 1980
  4. METAZYDYNA                         /00489601/ [Concomitant]
     Indication: CATARACT
  5. NORTIVAN [Concomitant]
     Indication: HYPERTENSION
     Route: 048
  6. BILOMAG PLUS [Concomitant]
     Indication: MEMORY IMPAIRMENT
     Dosage: UNK UNK, UNKNOWN FREQ.
     Route: 065
  7. 4 FLEX [Concomitant]
     Indication: POSTOPERATIVE CARE
     Route: 065

REACTIONS (6)
  - Blindness [Not Recovered/Not Resolved]
  - Visual impairment [Not Recovered/Not Resolved]
  - Glaucoma [Not Recovered/Not Resolved]
  - Cataract [Not Recovered/Not Resolved]
  - Intentional product misuse [Unknown]
  - Off label use [Unknown]
